FAERS Safety Report 23467985 (Version 2)
Quarter: 2024Q1

REPORT INFORMATION
  Report Type: Spontaneous
  Country: US (occurrence: US)
  Receive Date: 20240201
  Receipt Date: 20240317
  Transmission Date: 20240410
  Serious: No
  Sender: FDA-Public Use
  Company Number: US-JNJFOC-20240110890

PATIENT
  Age: 69 Year
  Sex: Male

DRUGS (2)
  1. MENS ROGAINE EXTRA STRENGTH [Suspect]
     Active Substance: MINOXIDIL
     Indication: Alopecia
     Dosage: 1 ML WAS USING IT 2 TWICE A DAY AND THEN WENT TO ONCE A DAY.
     Route: 061
     Dates: start: 2023
  2. MENS ROGAINE EXTRA STRENGTH [Suspect]
     Active Substance: MINOXIDIL
     Dosage: 1 ML WAS USING IT 2 TWICE A DAY AND THEN WENT TO ONCE A DAY.
     Route: 061
     Dates: start: 2023

REACTIONS (3)
  - Seborrhoea [Not Recovered/Not Resolved]
  - Application site irritation [Not Recovered/Not Resolved]
  - Application site pruritus [Not Recovered/Not Resolved]

NARRATIVE: CASE EVENT DATE: 20230101
